FAERS Safety Report 10262141 (Version 1)
Quarter: 2014Q2

REPORT INFORMATION
  Report Type: Spontaneous
  Country: US (occurrence: US)
  Receive Date: 20140626
  Receipt Date: 20140626
  Transmission Date: 20141212
  Serious: Yes (Death)
  Sender: FDA-Public Use
  Company Number: US-GLAXOSMITHKLINE-A1078119A

PATIENT
  Sex: Female

DRUGS (3)
  1. VOTRIENT [Suspect]
     Indication: RENAL CANCER
     Dosage: 800MG PER DAY
     Route: 048
     Dates: start: 20140114, end: 20140501
  2. BUDESONIDE [Concomitant]
  3. ONDANSETRON [Concomitant]

REACTIONS (1)
  - Death [Fatal]
